FAERS Safety Report 19312070 (Version 2)
Quarter: 2021Q2

REPORT INFORMATION
  Report Type: Report from Study
  Country: GB (occurrence: GB)
  Receive Date: 20210527
  Receipt Date: 20210604
  Transmission Date: 20210717
  Serious: Yes (Death, Other)
  Sender: FDA-Public Use
  Company Number: GB-MTPC-MTDA2021-0012906

PATIENT

DRUGS (2)
  1. RILUZOLE. [Suspect]
     Active Substance: RILUZOLE
     Dosage: 50 MILLIGRAM, BID FROM WEEK 4 UNTIL WEEK 96
     Route: 048
  2. RILUZOLE. [Suspect]
     Active Substance: RILUZOLE
     Indication: SECONDARY PROGRESSIVE MULTIPLE SCLEROSIS
     Dosage: 50 MILLIGRAM, QD FROM WEEK 0 FOR 4 WEEKS
     Route: 048

REACTIONS (2)
  - Myocardial ischaemia [Fatal]
  - Coronary artery thrombosis [Fatal]
